FAERS Safety Report 12304963 (Version 1)
Quarter: 2016Q2

REPORT INFORMATION
  Report Type: Spontaneous
  Country: IT (occurrence: IT)
  Receive Date: 20160426
  Receipt Date: 20160426
  Transmission Date: 20160815
  Serious: Yes (Other)
  Sender: FDA-Public Use
  Company Number: IT-SHIRE-IT201604751

PATIENT
  Age: 30 Year
  Sex: Male

DRUGS (1)
  1. XAGRID [Suspect]
     Active Substance: ANAGRELIDE HYDROCHLORIDE
     Indication: THROMBOCYTOSIS
     Dosage: 3 MG, 1X/DAY:QD
     Route: 048
     Dates: start: 20151211, end: 20160310

REACTIONS (4)
  - Condition aggravated [Unknown]
  - Thrombocytosis [Unknown]
  - Cardiotoxicity [Unknown]
  - Fatigue [Unknown]

NARRATIVE: CASE EVENT DATE: 20160310
